FAERS Safety Report 18285350 (Version 1)
Quarter: 2020Q3

REPORT INFORMATION
  Report Type: Spontaneous
  Country: US (occurrence: US)
  Receive Date: 20200918
  Receipt Date: 20200918
  Transmission Date: 20201103
  Serious: No
  Sender: FDA-Public Use
  Company Number: US-009507513-2009USA006559

PATIENT
  Age: 21 Year
  Sex: Female

DRUGS (1)
  1. NEXPLANON [Suspect]
     Active Substance: ETONOGESTREL
     Indication: CONTRACEPTION
     Dosage: ONE ROD
     Route: 059

REACTIONS (3)
  - No adverse event [Unknown]
  - Device breakage [Not Recovered/Not Resolved]
  - Complication of device removal [Not Recovered/Not Resolved]

NARRATIVE: CASE EVENT DATE: 20200915
